FAERS Safety Report 4335039-8 (Version None)
Quarter: 2004Q2

REPORT INFORMATION
  Report Type: 
  Country: None (occurrence: None)
  Receive Date: 20040408
  Receipt Date: 20030819
  Transmission Date: 20050107
  Serious: Yes (Disabling)
  Sender: FDA-Public Use
  Company Number: JP-GLAXOSMITHKLINE-B0307441A

PATIENT
  Age: 77 Year
  Sex: Male
  Weight: 60 kg

DRUGS (5)
  1. ZANTAC [Suspect]
     Indication: DUODENAL ULCER HAEMORRHAGE
     Dosage: 200MG PER DAY
     Route: 042
     Dates: start: 20030716
  2. OMEPRAZOLE [Concomitant]
     Indication: DUODENAL ULCER HAEMORRHAGE
     Dosage: 40MG PER DAY
     Route: 065
     Dates: start: 20030730, end: 20030827
  3. CEFMETAZOLE SODIUM [Concomitant]
     Indication: PNEUMONIA
     Dosage: 2G PER DAY
     Route: 042
     Dates: start: 20030630, end: 20030706
  4. CLINDAMYCIN PHOSPHATE [Concomitant]
     Indication: PNEUMONIA
     Dosage: 600MG PER DAY
     Route: 042
     Dates: start: 20030630, end: 20030714
  5. IMIPENEM + CILASTATIN SODIUM [Concomitant]
     Indication: PNEUMONIA
     Dosage: 1G PER DAY
     Route: 042
     Dates: start: 20030707, end: 20030714

REACTIONS (6)
  - DUODENAL ULCER HAEMORRHAGE [None]
  - HAEMOGLOBIN DECREASED [None]
  - IDIOPATHIC THROMBOCYTOPENIC PURPURA [None]
  - RED BLOOD CELL COUNT DECREASED [None]
  - THROMBOCYTOPENIA [None]
  - WHITE BLOOD CELL COUNT DECREASED [None]
